FAERS Safety Report 8464972-0 (Version None)
Quarter: 2012Q2

REPORT INFORMATION
  Report Type: 
  Country: None (occurrence: None)
  Receive Date: 20120626
  Receipt Date: 20120615
  Transmission Date: 20120825
  Serious: Yes (Hospitalization)
  Sender: FDA-Public Use
  Company Number: JP-VERTEX PHARMACEUTICALS INC.-AE-2012-007322

PATIENT
  Age: 62 Year
  Sex: Male

DRUGS (19)
  1. TELAVIC (TELAPREVIR) [Suspect]
     Route: 048
     Dates: start: 20120321, end: 20120501
  2. REBETOL [Concomitant]
     Route: 048
     Dates: start: 20120510
  3. PEG-INTRON [Concomitant]
     Route: 058
     Dates: start: 20120412, end: 20120426
  4. CANDESARTAN CILEXETIL [Concomitant]
     Route: 048
     Dates: start: 20040628
  5. ALLOPURINOL [Concomitant]
     Route: 048
     Dates: start: 20050920
  6. URALYT [Concomitant]
     Route: 048
     Dates: start: 20050920
  7. URSODIOL [Concomitant]
     Route: 048
  8. TELAVIC (TELAPREVIR) [Suspect]
     Indication: HEPATITIS C
     Route: 048
     Dates: start: 20120314, end: 20120320
  9. ALINAMIN-F [Concomitant]
     Route: 048
     Dates: start: 20100629
  10. MYSER OINTMENT [Concomitant]
     Route: 061
     Dates: start: 20120426
  11. PEG-INTRON [Concomitant]
     Route: 058
     Dates: start: 20120510
  12. TELAVIC (TELAPREVIR) [Suspect]
     Route: 048
     Dates: start: 20120502, end: 20120531
  13. REBETOL [Concomitant]
     Indication: HEPATITIS C
     Route: 048
     Dates: start: 20120314, end: 20120509
  14. FERROUS CITRATE [Concomitant]
     Route: 048
     Dates: start: 20120228, end: 20120426
  15. PEG-INTRON [Concomitant]
     Indication: HEPATITIS C
     Route: 058
     Dates: start: 20120314
  16. LANSOPRAZOLE [Concomitant]
     Route: 048
     Dates: start: 20090626
  17. URSO 250 [Concomitant]
     Route: 048
     Dates: start: 20030920
  18. ALLOPURINOL [Concomitant]
     Route: 048
  19. TALION OD [Concomitant]
     Route: 048
     Dates: start: 20120314

REACTIONS (1)
  - BLOOD CREATININE INCREASED [None]
